FAERS Safety Report 8286882-4 (Version None)
Quarter: 2012Q2

REPORT INFORMATION
  Report Type: 
  Country: None (occurrence: None)
  Receive Date: 20120416
  Receipt Date: 20120409
  Transmission Date: 20120825
  Serious: No
  Sender: FDA-Public Use
  Company Number: US-PFIZER INC-2012092511

PATIENT
  Sex: Female
  Weight: 85.7 kg

DRUGS (1)
  1. IBUPROFEN (ADVIL) [Suspect]
     Indication: PAIN IN EXTREMITY
     Dosage: 20 MG, AS NEEDED
     Route: 048
     Dates: start: 20120301

REACTIONS (1)
  - DRUG INEFFECTIVE [None]
